FAERS Safety Report 8535108-2 (Version None)
Quarter: 2012Q3

REPORT INFORMATION
  Report Type: 
  Country: None (occurrence: None)
  Receive Date: 20120724
  Receipt Date: 20120718
  Transmission Date: 20120928
  Serious: Yes (Other)
  Sender: FDA-Public Use
  Company Number: JP-PFIZER INC-2012173985

PATIENT

DRUGS (1)
  1. ALPRAZOLAM [Suspect]
     Dosage: 3.2 MG, 1X/DAY
     Route: 064

REACTIONS (2)
  - DRUG WITHDRAWAL SYNDROME NEONATAL [None]
  - MATERNAL EXPOSURE TIMING UNSPECIFIED [None]
